FAERS Safety Report 5484935-7 (Version None)
Quarter: 2007Q4

REPORT INFORMATION
  Report Type: 
  Country: None (occurrence: None)
  Receive Date: 20071011
  Receipt Date: 20071001
  Transmission Date: 20080405
  Serious: Yes (Hospitalization)
  Sender: FDA-Public Use
  Company Number: 2007SP003391

PATIENT
  Sex: Female

DRUGS (13)
  1. LUNESTA [Suspect]
     Indication: INSOMNIA
     Dosage: 2MG; PRN; ORAL
     Route: 048
     Dates: start: 20070901, end: 20070925
  2. TRAZODONE HCL [Concomitant]
  3. HORMONES AND RELATED AGENTS [Concomitant]
  4. METOCLOPRAMIDE [Concomitant]
  5. METHADONE HCL [Concomitant]
  6. METOPROLOL [Concomitant]
  7. TOPRAMAX [Concomitant]
  8. GLUCOPHAGE [Concomitant]
  9. NEXIUM [Concomitant]
  10. FLEXERIL [Concomitant]
  11. SEREVENT [Concomitant]
  12. IRON [Concomitant]
  13. ZOLOFT [Concomitant]

REACTIONS (5)
  - DISORIENTATION [None]
  - HAEMATEMESIS [None]
  - HAEMATOCRIT DECREASED [None]
  - MENTAL STATUS CHANGES [None]
  - NAUSEA [None]
